FAERS Safety Report 13210139 (Version 1)
Quarter: 2017Q1

REPORT INFORMATION
  Report Type: Spontaneous
  Country: US (occurrence: US)
  Receive Date: 20170210
  Receipt Date: 20170210
  Transmission Date: 20170428
  Serious: No
  Sender: FDA-Public Use
  Company Number: US-BAYER-2017-027450

PATIENT
  Sex: Female

DRUGS (7)
  1. LORTAB [Concomitant]
     Active Substance: ACETAMINOPHEN\HYDROCODONE BITARTRATE
  2. ELAVIL [Concomitant]
     Active Substance: AMITRIPTYLINE HYDROCHLORIDE
  3. NEURONTIN [Concomitant]
     Active Substance: GABAPENTIN
  4. XANAX [Concomitant]
     Active Substance: ALPRAZOLAM
  5. MIRAPEX [Concomitant]
     Active Substance: PRAMIPEXOLE DIHYDROCHLORIDE
  6. BETASERON [Suspect]
     Active Substance: INTERFERON BETA-1B
     Indication: PROGRESSIVE MULTIPLE SCLEROSIS
     Dosage: UNK
     Dates: start: 20120319, end: 20140518
  7. AMBIEN [Concomitant]
     Active Substance: ZOLPIDEM TARTRATE

REACTIONS (2)
  - Injection site urticaria [Recovered/Resolved]
  - Injection site pain [Recovered/Resolved]

NARRATIVE: CASE EVENT DATE: 20120919
